FAERS Safety Report 25483798 (Version 1)
Quarter: 2025Q2

REPORT INFORMATION
  Report Type: Spontaneous
  Country: US (occurrence: None)
  Receive Date: 20250625
  Receipt Date: 20250625
  Transmission Date: 20250716
  Serious: Yes (Hospitalization)
  Sender: FDA-CTU
  Company Number: None

PATIENT
  Age: 74 Year
  Sex: Male

DRUGS (16)
  1. TACROLIMUS [Suspect]
     Active Substance: TACROLIMUS
     Indication: Lung transplant
     Dosage: FREQUENCY : TWICE A DAY;?
     Route: 048
  2. TACROLIMUS [Suspect]
     Active Substance: TACROLIMUS
     Indication: Lung transplant
     Dosage: FREQUENCY : TWICE A DAY;?
     Route: 048
  3. VALTREX 1GM TABLETS [Concomitant]
  4. ATOVAQUONE 750MG/5ML SUSPENSION [Concomitant]
  5. METOPROLOL SUCCINATE [Concomitant]
     Active Substance: METOPROLOL SUCCINATE
  6. AZITHROMYCIN [Concomitant]
     Active Substance: AZITHROMYCIN
  7. FAMOTIDINE [Concomitant]
     Active Substance: FAMOTIDINE
  8. PREDNISONE [Concomitant]
     Active Substance: PREDNISONE
  9. ATORVASTATIN [Concomitant]
     Active Substance: ATORVASTATIN
  10. AZELASTINE 0.1%(137MCG) NASAL-200SP [Concomitant]
  11. CLARITIN 10MG TABLETS [Concomitant]
  12. FLONASE 50MCG NAS SPRAY RX (120SPR) [Concomitant]
  13. VITAMIN D3 1,000 UNIT TABLET [Concomitant]
  14. ASPIRIN 81 MG TABLET [Concomitant]
  15. MG PLUS PROTEIN 133 MG TABLET [Concomitant]
  16. BUDESONIE/FORMOTEROL 80/4.5 MCG INHALER [Concomitant]

REACTIONS (1)
  - Hospitalisation [None]
